FAERS Safety Report 22257160 (Version 4)
Quarter: 2023Q2

REPORT INFORMATION
  Report Type: Spontaneous
  Country: US (occurrence: US)
  Receive Date: 20230427
  Receipt Date: 20230607
  Transmission Date: 20230721
  Serious: No
  Sender: FDA-Public Use
  Company Number: US-UNITED THERAPEUTICS-UNT-2023-011736

PATIENT
  Sex: Female

DRUGS (4)
  1. TYVASO DPI [Suspect]
     Active Substance: TREPROSTINIL
     Indication: Pulmonary arterial hypertension
     Dosage: 64 ?G, QID
  2. TYVASO DPI [Suspect]
     Active Substance: TREPROSTINIL
     Dosage: UNK
     Dates: start: 202209
  3. TYVASO DPI [Suspect]
     Active Substance: TREPROSTINIL
     Indication: Pulmonary arterial hypertension
     Dosage: UNK
  4. ROBITUSSIN (GUAIFENESIN) [Suspect]
     Active Substance: GUAIFENESIN
     Indication: Productive cough
     Dosage: UNK
     Route: 065

REACTIONS (13)
  - Cough [Unknown]
  - Choking sensation [Unknown]
  - Upper respiratory tract infection [Unknown]
  - Seasonal allergy [Not Recovered/Not Resolved]
  - Dry throat [Recovering/Resolving]
  - Oesophageal disorder [Recovering/Resolving]
  - Joint swelling [Recovering/Resolving]
  - Peripheral swelling [Recovering/Resolving]
  - Dyspnoea [Unknown]
  - Productive cough [Unknown]
  - Throat irritation [Unknown]
  - Patient dissatisfaction with treatment [Unknown]
  - Therapy partial responder [Unknown]
